FAERS Safety Report 8020166-4 (Version None)
Quarter: 2012Q1

REPORT INFORMATION
  Report Type: 
  Country: None (occurrence: None)
  Receive Date: 20120103
  Receipt Date: 20111229
  Transmission Date: 20120608
  Serious: Yes (Hospitalization)
  Sender: FDA-Public Use
  Company Number: US-B.I. PHARMACEUTICALS,INC./RIDGEFIELD-2012-BP-00001BP

PATIENT
  Sex: Male

DRUGS (15)
  1. BENZAPRIL HCL [Concomitant]
     Indication: HYPERTENSION
     Route: 048
  2. NITROSTAT [Concomitant]
     Route: 060
  3. SPIRIVA [Suspect]
     Indication: CHRONIC OBSTRUCTIVE PULMONARY DISEASE
     Dosage: 18 MCG
     Route: 055
     Dates: start: 20090101
  4. NITROGLYCERIN [Concomitant]
     Indication: CARDIAC DISORDER
     Route: 061
  5. METFORMIN HCL [Concomitant]
     Indication: DIABETES MELLITUS
     Route: 048
  6. COMBIVENT [Concomitant]
     Route: 055
  7. PROAIR HFA [Concomitant]
     Route: 055
  8. LYRICA [Concomitant]
     Route: 048
  9. HYDROCODONE [Concomitant]
     Route: 048
  10. LIPITOR [Concomitant]
     Indication: BLOOD CHOLESTEROL INCREASED
     Route: 048
  11. METOPROLOL TARTRATE [Concomitant]
     Indication: HYPERTENSION
     Route: 048
  12. ASPIRIN [Concomitant]
     Dosage: 81 MG
     Route: 048
  13. NEXIUM [Concomitant]
     Route: 048
  14. AMLODIPINE [Concomitant]
     Dosage: 5 MG
     Route: 048
  15. EFFIENT [Concomitant]
     Indication: ANTICOAGULANT THERAPY
     Route: 048

REACTIONS (2)
  - PNEUMONIA [None]
  - STENT PLACEMENT [None]
